FAERS Safety Report 10154948 (Version 1)
Quarter: 2014Q2

REPORT INFORMATION
  Report Type: Spontaneous
  Country: US (occurrence: US)
  Receive Date: 20140506
  Receipt Date: 20140506
  Transmission Date: 20141212
  Serious: No
  Sender: FDA-Public Use
  Company Number: US-BAYER-2014-066398

PATIENT
  Age: 65 Year
  Sex: Female
  Weight: 72 kg

DRUGS (1)
  1. ALEVE TABLET [Suspect]
     Indication: EYE INFLAMMATION
     Dosage: 2 DF, BID
     Route: 048
     Dates: start: 201404

REACTIONS (2)
  - Incorrect dose administered [None]
  - Off label use [None]
